FAERS Safety Report 6979471-2 (Version None)
Quarter: 2010Q3

REPORT INFORMATION
  Report Type: 
  Country: None (occurrence: None)
  Receive Date: 20100908
  Receipt Date: 20100831
  Transmission Date: 20110219
  Serious: Yes (Disabling)
  Sender: FDA-Public Use
  Company Number: OSCN-NO-0912S-0531

PATIENT
  Age: 58 Year
  Sex: Male
  Weight: 73 kg

DRUGS (2)
  1. OMNISCAN [Suspect]
     Indication: MYOSITIS OSSIFICANS
     Dosage: 50 ML, SINGLE DOSE, I.V.
     Route: 042
     Dates: start: 20020607, end: 20020607
  2. MEGLUMINE GADOTERATE (DOTAREM) OR GADOLINIUM (UNSPECIFIED) [Concomitant]

REACTIONS (1)
  - NEPHROGENIC SYSTEMIC FIBROSIS [None]
